FAERS Safety Report 5442142-8 (Version None)
Quarter: 2007Q3

REPORT INFORMATION
  Report Type: 
  Country: None (occurrence: None)
  Receive Date: 20070904
  Receipt Date: 20070824
  Transmission Date: 20080115
  Serious: Yes (Hospitalization)
  Sender: FDA-Public Use
  Company Number: GBWYE143207AUG07

PATIENT
  Sex: Female

DRUGS (3)
  1. EFFEXOR [Suspect]
     Route: 048
     Dates: start: 20070717, end: 20070801
  2. EFFEXOR [Suspect]
     Dates: start: 20070801, end: 20070801
  3. EFFEXOR XR [Suspect]
     Route: 048
     Dates: start: 20070801

REACTIONS (4)
  - ANXIETY [None]
  - BRUXISM [None]
  - HEADACHE [None]
  - INTENTIONAL DRUG MISUSE [None]
